FAERS Safety Report 6623795-5 (Version None)
Quarter: 2010Q1

REPORT INFORMATION
  Report Type: 
  Country: None (occurrence: None)
  Receive Date: 20100310
  Receipt Date: 20100225
  Transmission Date: 20100710
  Serious: Yes (Congenital Anomaly)
  Sender: FDA-Public Use
  Company Number: PHHY2010TR11176

PATIENT
  Sex: Female
  Weight: 3.7 kg

DRUGS (1)
  1. TEGRETOL-XR [Suspect]

REACTIONS (3)
  - CLEFT UVULA [None]
  - DRUG EXPOSURE DURING PREGNANCY [None]
  - NASAL DISORDER [None]
